FAERS Safety Report 9228380 (Version 1)
Quarter: 2013Q2

REPORT INFORMATION
  Report Type: Report from Study
  Country: US (occurrence: US)
  Receive Date: 20130412
  Receipt Date: 20130412
  Transmission Date: 20140414
  Serious: Yes (Hospitalization)
  Sender: FDA-Public Use
  Company Number: US-ABBOTT-13P-163-1072115-00

PATIENT
  Age: 68 Year
  Sex: Female
  Weight: 67.19 kg

DRUGS (11)
  1. HUMIRA [Suspect]
     Indication: RHEUMATOID ARTHRITIS
     Dates: start: 201203
  2. PREDNISONE [Concomitant]
     Indication: RHEUMATOID ARTHRITIS
  3. METHOTREXATE [Concomitant]
     Indication: RHEUMATOID ARTHRITIS
  4. ACTONEL [Concomitant]
     Indication: OSTEOPOROSIS
  5. ULTRAM [Concomitant]
     Indication: RHEUMATOID ARTHRITIS
  6. XANAX [Concomitant]
     Indication: ANXIETY
  7. CIPAZOLAM [Concomitant]
     Indication: DEPRESSION
  8. AMBIEN [Concomitant]
     Indication: SLEEP DISORDER
  9. FOLIC ACID [Concomitant]
     Indication: RHEUMATOID ARTHRITIS
  10. FLEXARIL [Concomitant]
     Indication: MUSCLE SPASMS
  11. BENICAR [Concomitant]
     Indication: HYPERTENSION

REACTIONS (5)
  - Exostosis [Recovered/Resolved]
  - Gait disturbance [Recovered/Resolved]
  - Cystitis [Recovering/Resolving]
  - Pyrexia [Not Recovered/Not Resolved]
  - Decreased appetite [Not Recovered/Not Resolved]
